FAERS Safety Report 24186941 (Version 1)
Quarter: 2024Q3

REPORT INFORMATION
  Report Type: Spontaneous
  Country: FR (occurrence: FR)
  Receive Date: 20240808
  Receipt Date: 20240808
  Transmission Date: 20241017
  Serious: Yes (Hospitalization)
  Sender: ACS DOBFAR
  Company Number: None

PATIENT
  Age: 59 Year
  Sex: Male

DRUGS (8)
  1. MEROPENEM [Suspect]
     Active Substance: MEROPENEM
     Indication: Lung disorder
     Route: 042
     Dates: start: 20240129, end: 20240131
  2. SPIRAMYCIN [Suspect]
     Active Substance: SPIRAMYCIN
     Indication: Lung disorder
     Route: 042
     Dates: start: 20240129, end: 20240201
  3. ALPRAZOLAM [Concomitant]
     Active Substance: ALPRAZOLAM
  4. CEFEPIME [Suspect]
     Active Substance: CEFEPIME HYDROCHLORIDE
     Indication: Lung disorder
     Route: 042
     Dates: start: 20240131, end: 20240201
  5. VALPROATE SODIUM [Concomitant]
     Active Substance: VALPROATE SODIUM
  6. CLOBAZAM [Concomitant]
     Active Substance: CLOBAZAM
  7. MIRTAZAPINE [Concomitant]
     Active Substance: MIRTAZAPINE
  8. CEFTRIAXONE SODIUM [Suspect]
     Active Substance: CEFTRIAXONE SODIUM
     Indication: Lung disorder
     Route: 042
     Dates: start: 20240201, end: 20240204

REACTIONS (3)
  - Acute kidney injury [Recovered/Resolved]
  - Nephrolithiasis [Recovered/Resolved]
  - Off label use [Unknown]

NARRATIVE: CASE EVENT DATE: 20240201
